FAERS Safety Report 22012945 (Version 1)
Quarter: 2023Q1

REPORT INFORMATION
  Report Type: Report from Study
  Country: US (occurrence: US)
  Receive Date: 20230220
  Receipt Date: 20230220
  Transmission Date: 20230418
  Serious: Yes (Hospitalization)
  Sender: FDA-Public Use
  Company Number: US-MYLANLABS-2023M1017198

PATIENT
  Sex: Female
  Weight: 65.77 kg

DRUGS (1)
  1. GLATIRAMER ACETATE [Suspect]
     Active Substance: GLATIRAMER ACETATE
     Indication: Relapsing-remitting multiple sclerosis
     Dosage: 40 MILLIGRAM, Q3W
     Route: 058

REACTIONS (5)
  - COVID-19 [Recovering/Resolving]
  - Needle issue [Unknown]
  - Visual impairment [Unknown]
  - Memory impairment [Unknown]
  - Weight increased [Unknown]
